FAERS Safety Report 10910323 (Version 1)
Quarter: 2015Q1

REPORT INFORMATION
  Report Type: Spontaneous
  Country: US (occurrence: US)
  Receive Date: 20150312
  Receipt Date: 20150312
  Transmission Date: 20150721
  Serious: No
  Sender: FDA-Public Use
  Company Number: US-SA-2014SA158332

PATIENT
  Age: 72 Year
  Sex: Female

DRUGS (3)
  1. NASACORT ALLERGY 24HR [Suspect]
     Active Substance: TRIAMCINOLONE ACETONIDE
     Indication: HYPERSENSITIVITY
     Dosage: PRODUCT START DATE:OFF AND ON SINCE SEPTEMBER 2014
     Route: 065
     Dates: start: 201409
  2. NASACORT ALLERGY 24HR [Suspect]
     Active Substance: TRIAMCINOLONE ACETONIDE
     Indication: HYPERSENSITIVITY
     Dosage: PRODUCT START DATE:OFF AND ON SINCE SEPTEMBER 2014
     Route: 065
     Dates: start: 201409
  3. NASACORT ALLERGY 24HR [Suspect]
     Active Substance: TRIAMCINOLONE ACETONIDE
     Indication: HYPERSENSITIVITY
     Dosage: PRODUCT START DATE:OFF AND ON SINCE SEPTEMBER 2014
     Route: 065
     Dates: start: 201409

REACTIONS (2)
  - Sneezing [Recovered/Resolved]
  - Drug ineffective [Unknown]
